FAERS Safety Report 25700811 (Version 1)
Quarter: 2025Q3

REPORT INFORMATION
  Report Type: Spontaneous
  Country: US (occurrence: US)
  Receive Date: 20250819
  Receipt Date: 20250819
  Transmission Date: 20251020
  Serious: No
  Sender: SANOFI AVENTIS
  Company Number: US-SA-2025SA247073

PATIENT
  Sex: Female
  Weight: 63.64 kg

DRUGS (3)
  1. DUPIXENT [Suspect]
     Active Substance: DUPILUMAB
     Indication: Dermatitis atopic
     Dosage: 1 DF, QOW
  2. ONDANSETRON [Concomitant]
     Active Substance: ONDANSETRON
  3. DICLEGIS [Concomitant]
     Active Substance: DOXYLAMINE SUCCINATE\PYRIDOXINE HYDROCHLORIDE

REACTIONS (1)
  - Maternal exposure during pregnancy [Unknown]
